FAERS Safety Report 6417515-7 (Version None)
Quarter: 2009Q4

REPORT INFORMATION
  Report Type: 
  Country: None (occurrence: None)
  Receive Date: 20091028
  Receipt Date: 20091016
  Transmission Date: 20100525
  Serious: Yes (Hospitalization)
  Sender: FDA-Public Use
  Company Number: MY-PFIZER INC-2006091563

PATIENT
  Age: 55 Year

DRUGS (6)
  1. SUNITINIB MALATE [Suspect]
     Indication: METASTATIC RENAL CELL CARCINOMA
     Dosage: 37.5 MG, 1X/DAY
     Route: 048
     Dates: start: 20060520
  2. HARTMANN [Concomitant]
     Route: 042
     Dates: start: 20060721, end: 20060721
  3. HAEMACCEL [Concomitant]
     Route: 042
     Dates: start: 20060721, end: 20060721
  4. DEXTROSE [Concomitant]
     Route: 042
     Dates: start: 20060721, end: 20060721
  5. ZANTAC [Concomitant]
     Route: 042
     Dates: start: 20060721, end: 20060721
  6. PARENTROVITE [Concomitant]
     Route: 042
     Dates: start: 20060721, end: 20060721

REACTIONS (2)
  - HYPONATRAEMIA [None]
  - HYPOTENSION [None]
